FAERS Safety Report 23748112 (Version 1)
Quarter: 2024Q2

REPORT INFORMATION
  Report Type: Spontaneous
  Country: US (occurrence: US)
  Receive Date: 20240416
  Receipt Date: 20240416
  Transmission Date: 20240716
  Serious: No
  Sender: FDA-Public Use
  Company Number: US-ABBVIE-5716203

PATIENT
  Sex: Male

DRUGS (1)
  1. RINVOQ [Suspect]
     Active Substance: UPADACITINIB
     Indication: Gastrointestinal disorder
     Route: 048

REACTIONS (2)
  - Blood creatine increased [Unknown]
  - Dementia [Unknown]

NARRATIVE: CASE EVENT DATE: 20240101
